FAERS Safety Report 6792684-8 (Version None)
Quarter: 2010Q2

REPORT INFORMATION
  Report Type: 
  Country: None (occurrence: None)
  Receive Date: 20100624
  Receipt Date: 20080902
  Transmission Date: 20101027
  Serious: Yes (Other)
  Sender: FDA-Public Use
  Company Number: US-PFIZER INC-2008074212

PATIENT
  Sex: Male

DRUGS (1)
  1. CADUET [Suspect]
     Dates: start: 20080101, end: 20080101

REACTIONS (2)
  - HEART RATE DECREASED [None]
  - OEDEMA PERIPHERAL [None]
